FAERS Safety Report 21568095 (Version 5)
Quarter: 2024Q1

REPORT INFORMATION
  Report Type: Spontaneous
  Country: CA (occurrence: None)
  Receive Date: 20221108
  Receipt Date: 20240208
  Transmission Date: 20240410
  Serious: Yes (Other)
  Sender: FDA-Public Use
  Company Number: 2021A881013

PATIENT
  Age: 57 Year
  Sex: Female

DRUGS (17)
  1. QUETIAPINE FUMARATE [Suspect]
     Active Substance: QUETIAPINE FUMARATE
     Indication: Panic attack
     Dosage: 25 MG ( TAKE 1/2 WHEN PANIC ATTACK OCCURS AND TAKE 1/2 TAB AT BEDTIME)25.0MG UNKNOWN
     Route: 048
  2. BACLOFEN [Suspect]
     Active Substance: BACLOFEN
     Indication: Product used for unknown indication
     Dosage: 10 MG (IN AM AND BEDTIME)10.0MG UNKNOWN
  3. CITALOPRAM HYDROBROMIDE [Suspect]
     Active Substance: CITALOPRAM HYDROBROMIDE
     Indication: Product used for unknown indication
     Dosage: 30.0MG UNKNOWN
  4. FLUTICASONE PROPIONATE [Suspect]
     Active Substance: FLUTICASONE PROPIONATE
     Indication: Asthma
     Dosage: 250MG (TAKE 2 PUFFS WHEN NEEDED FOR ASTHMA)250.0MG UNKNOWN
  5. GABAPENTIN [Suspect]
     Active Substance: GABAPENTIN
     Indication: Neuralgia
     Dosage: 100 MG TABS 3 IN AM,2 TAB AT 3 PM,3 TAB AT 8 PM100.0MG UNKNOWN
  6. GABAPENTIN [Suspect]
     Active Substance: GABAPENTIN
     Indication: Neuralgia
     Dosage: 100 MG TABS 3 IN AM,2 TAB AT 3 PM,3 TAB AT 8 PM100.0MG UNKNOWN
  7. RITUXIMAB [Suspect]
     Active Substance: RITUXIMAB
     Indication: Multiple sclerosis
     Dosage: UNKNOWN1000.0MG UNKNOWN
     Route: 042
     Dates: start: 20220606
  8. RITUXIMAB [Suspect]
     Active Substance: RITUXIMAB
     Indication: Multiple sclerosis
     Dosage: 1000.0MG UNKNOWN
     Route: 042
  9. RITUXIMAB [Suspect]
     Active Substance: RITUXIMAB
     Indication: Multiple sclerosis
     Dosage: UNKNOWN
     Route: 042
  10. RITUXIMAB [Suspect]
     Active Substance: RITUXIMAB
     Indication: Multiple sclerosis
     Dosage: 1000.0UG UNKNOWN
     Route: 042
  11. ALBUTEROL [Suspect]
     Active Substance: ALBUTEROL
     Indication: Asthma
     Dosage: 100.0UG UNKNOWN
  12. ULTRAVATE [Suspect]
     Active Substance: HALOBETASOL PROPIONATE
     Indication: Psoriasis
  13. ACETAMINOPHEN [Concomitant]
     Active Substance: ACETAMINOPHEN
     Indication: Product used for unknown indication
     Dosage: 650MG (30-MIN PRE-INFUSION)650.0MG UNKNOWN
     Route: 048
  14. DIMENHYDRINATE [Concomitant]
     Active Substance: DIMENHYDRINATE
     Indication: Product used for unknown indication
     Dosage: 50 MG50.0MG UNKNOWN
     Route: 048
  15. DIPHENHYDRAMINE [Concomitant]
     Active Substance: DIPHENHYDRAMINE
     Indication: Product used for unknown indication
     Dosage: 50MG (30-MIN PRE-INFUSION)50.0MG UNKNOWN
     Route: 048
  16. DIPHENHYDRAMINE HYDROCHLORIDE [Concomitant]
     Active Substance: DIPHENHYDRAMINE HYDROCHLORIDE
     Indication: Product used for unknown indication
     Dosage: 50MG (30-MIN PRE-INFUSION)50.0MG UNKNOWN
     Route: 048
  17. METHYLPREDNISOLONE [Concomitant]
     Active Substance: METHYLPREDNISOLONE
     Indication: Product used for unknown indication
     Dosage: 100MG (30-MIN PRE-INFUSION)100.0MG UNKNOWN
     Route: 042

REACTIONS (8)
  - Suspected COVID-19 [Not Recovered/Not Resolved]
  - Cough [Not Recovered/Not Resolved]
  - Bronchitis [Not Recovered/Not Resolved]
  - Product use in unapproved indication [Not Recovered/Not Resolved]
  - Noninfective encephalitis [Not Recovered/Not Resolved]
  - Multiple sclerosis [Not Recovered/Not Resolved]
  - Oropharyngeal pain [Not Recovered/Not Resolved]
  - Malaise [Not Recovered/Not Resolved]
